FAERS Safety Report 24427219 (Version 2)
Quarter: 2024Q4

REPORT INFORMATION
  Report Type: Spontaneous
  Country: US (occurrence: US)
  Receive Date: 20241011
  Receipt Date: 20241111
  Transmission Date: 20250115
  Serious: No
  Sender: PFIZER
  Company Number: US-PFIZER INC-202400271824

PATIENT
  Age: 12 Year
  Sex: Male

DRUGS (1)
  1. GENOTROPIN [Suspect]
     Active Substance: SOMATROPIN
     Dosage: INJECT 1MG UNDER SKIN, FOR 6 DAYS A WEEK
     Dates: start: 20241005

REACTIONS (2)
  - Device leakage [Unknown]
  - Drug dose omission by device [Unknown]
